FAERS Safety Report 4723886-X (Version None)
Quarter: 2005Q3

REPORT INFORMATION
  Report Type: 
  Country: None (occurrence: None)
  Receive Date: 20050721
  Receipt Date: 20050713
  Transmission Date: 20060218
  Serious: Yes (Hospitalization, Other)
  Sender: FDA-Public Use
  Company Number: 2005102052

PATIENT
  Age: 77 Year
  Sex: Female

DRUGS (8)
  1. LIPITOR [Suspect]
     Indication: BLOOD CHOLESTEROL INCREASED
     Dosage: 10 MG (10 MG, 1 IN 1 D), ORAL
     Route: 048
  2. ISOSORBIDE (ISOSORBIDE) [Concomitant]
  3. ^ASALOWSTR^ (ALL OTHER THERAPEUTIC PRODUCTS) [Concomitant]
  4. FUROSEMIDE (FUROSEMIDE) [Concomitant]
  5. PLAVIX [Concomitant]
  6. AMIODARONE HCL [Concomitant]
  7. ALTACE [Concomitant]
  8. POTASSIUM CHLORIDE [Concomitant]

REACTIONS (1)
  - MYOCARDIAL INFARCTION [None]
